FAERS Safety Report 7983427-0 (Version None)
Quarter: 2011Q4

REPORT INFORMATION
  Report Type: 
  Country: None (occurrence: None)
  Receive Date: 20111215
  Receipt Date: 20111206
  Transmission Date: 20120403
  Serious: Yes (Hospitalization)
  Sender: FDA-Public Use
  Company Number: CA-BAXTER-2011BH037417

PATIENT

DRUGS (2)
  1. DEXTROSE 5% [Suspect]
     Indication: MEDICATION DILUTION
     Route: 065
     Dates: start: 20111124
  2. NOREPINEPHRINE BITARTRATE [Suspect]
     Indication: PRODUCT USED FOR UNKNOWN INDICATION
     Route: 065
     Dates: start: 20111124

REACTIONS (3)
  - DRUG INEFFECTIVE [None]
  - DEVICE ISSUE [None]
  - BLOOD PRESSURE DECREASED [None]
